FAERS Safety Report 11421544 (Version 2)
Quarter: 2015Q4

REPORT INFORMATION
  Report Type: Spontaneous
  Country: US (occurrence: US)
  Receive Date: 20150826
  Receipt Date: 20151021
  Transmission Date: 20160304
  Serious: No
  Sender: FDA-Public Use
  Company Number: US-AMGEN-USASP2014030688

PATIENT
  Age: 63 Year
  Sex: Female
  Weight: 49.43 kg

DRUGS (4)
  1. GABAPENTIN. [Concomitant]
     Active Substance: GABAPENTIN
     Dosage: UNK
  2. NAPROSYN [Concomitant]
     Active Substance: NAPROXEN
     Dosage: UNK
  3. OMEPRAZOLE. [Concomitant]
     Active Substance: OMEPRAZOLE
     Dosage: UNK
  4. ENBREL [Suspect]
     Active Substance: ETANERCEPT
     Indication: PSORIATIC ARTHROPATHY
     Dosage: 50 MG, QWK
     Route: 058
     Dates: start: 201202

REACTIONS (13)
  - Fine motor delay [Unknown]
  - Immunisation reaction [Unknown]
  - Muscular weakness [Not Recovered/Not Resolved]
  - Nerve injury [Recovering/Resolving]
  - Atrophy [Recovering/Resolving]
  - Musculoskeletal pain [Recovering/Resolving]
  - Adverse drug reaction [Recovering/Resolving]
  - Hypoaesthesia [Not Recovered/Not Resolved]
  - Drug effect delayed [Recovering/Resolving]
  - Paraesthesia [Not Recovered/Not Resolved]
  - Pain in extremity [Not Recovered/Not Resolved]
  - Mobility decreased [Recovering/Resolving]
  - Hypersensitivity [Recovering/Resolving]

NARRATIVE: CASE EVENT DATE: 2013
